FAERS Safety Report 9717425 (Version 1)
Quarter: 2013Q4

REPORT INFORMATION
  Report Type: Spontaneous
  Country: US (occurrence: US)
  Receive Date: 20131127
  Receipt Date: 20131127
  Transmission Date: 20140711
  Serious: No
  Sender: FDA-Public Use
  Company Number: US-GILEAD-2008-0019655

PATIENT
  Sex: Female
  Weight: 81.65 kg

DRUGS (13)
  1. LETAIRIS [Suspect]
     Indication: COR PULMONALE CHRONIC
     Route: 048
     Dates: start: 20081219
  2. PLAQUENIL [Concomitant]
     Route: 048
  3. LEVOXYL [Concomitant]
     Route: 048
  4. TRICOR [Concomitant]
     Route: 048
  5. PROTONIX [Concomitant]
     Route: 048
  6. SUDAFED [Concomitant]
     Route: 048
  7. BIOTIN [Concomitant]
     Route: 048
  8. MOBIC [Concomitant]
     Route: 048
  9. BENADRYL [Concomitant]
     Route: 048
  10. WELCHOL [Concomitant]
     Route: 048
  11. CRANBERRY CAPSULE [Concomitant]
     Route: 048
  12. FISH OIL [Concomitant]
     Route: 048
  13. FLAX SEED [Concomitant]
     Route: 048

REACTIONS (2)
  - Hypoaesthesia [Unknown]
  - Local swelling [Unknown]
